FAERS Safety Report 22054533 (Version 1)
Quarter: 2023Q1

REPORT INFORMATION
  Report Type: Spontaneous
  Country: US (occurrence: US)
  Receive Date: 20230302
  Receipt Date: 20230302
  Transmission Date: 20230418
  Serious: No
  Sender: FDA-Public Use
  Company Number: US-SA-SAC20230301000980

PATIENT
  Age: 56 Year
  Sex: Female
  Weight: 122 kg

DRUGS (3)
  1. AUBAGIO [Suspect]
     Active Substance: TERIFLUNOMIDE
     Indication: Multiple sclerosis
     Dosage: 1 DF, QD
     Route: 048
     Dates: start: 202205
  2. VITAMIN D3 [Concomitant]
     Active Substance: CHOLECALCIFEROL
  3. ONE-A-DAY [CETIRIZINE HYDROCHLORIDE] [Concomitant]

REACTIONS (2)
  - Diarrhoea [Unknown]
  - Hair disorder [Unknown]

NARRATIVE: CASE EVENT DATE: 20220501
